FAERS Safety Report 17001558 (Version 3)
Quarter: 2021Q1

REPORT INFORMATION
  Report Type: Spontaneous
  Country: US (occurrence: US)
  Receive Date: 20191106
  Receipt Date: 20210126
  Transmission Date: 20210419
  Serious: Yes (Hospitalization, Other)
  Sender: FDA-Public Use
  Company Number: US-PFIZER INC-2019477087

PATIENT
  Age: 54 Year
  Sex: Female
  Weight: 71.67 kg

DRUGS (1)
  1. PREMARIN [Suspect]
     Active Substance: ESTROGENS, CONJUGATED
     Indication: HORMONE LEVEL ABNORMAL
     Dosage: 0.625 MG, 1X/DAY(AT NIGHT)

REACTIONS (6)
  - Vulvovaginal injury [Not Recovered/Not Resolved]
  - Disturbance in attention [Unknown]
  - Product use in unapproved indication [Unknown]
  - Disease recurrence [Not Recovered/Not Resolved]
  - Off label use [Unknown]
  - Anal injury [Not Recovered/Not Resolved]

NARRATIVE: CASE EVENT DATE: 2019
